FAERS Safety Report 8624303-X (Version None)
Quarter: 2012Q3

REPORT INFORMATION
  Report Type: 
  Country: None (occurrence: None)
  Receive Date: 20120827
  Receipt Date: 20120820
  Transmission Date: 20120928
  Serious: Yes (Death)
  Sender: FDA-Public Use
  Company Number: JP-CELGENEUS-087-50794-12080323

PATIENT
  Age: 72 Year
  Sex: Male
  Weight: 61 kg

DRUGS (21)
  1. ALMARL [Concomitant]
     Route: 065
  2. KYTRIL [Concomitant]
     Route: 065
     Dates: start: 20110711, end: 20110814
  3. VIDAZA [Suspect]
     Dosage: 75 MILLIGRAM/SQ. METER
     Route: 041
     Dates: start: 20110711, end: 20110717
  4. ALINAMIN-F [Concomitant]
     Route: 065
  5. FLUCONAZOLE [Concomitant]
     Route: 065
  6. ARMODAFINIL [Concomitant]
     Route: 065
     Dates: start: 20110824, end: 20111026
  7. NORVASC [Concomitant]
     Route: 065
  8. CIPROFLOXACIN HCL [Concomitant]
     Route: 065
     Dates: start: 20110824, end: 20111012
  9. DEXAMETHASONE SODIUM PHOSPHATE [Concomitant]
     Route: 065
     Dates: end: 20110930
  10. NEOPHAGEN [Concomitant]
     Route: 065
     Dates: start: 20110801, end: 20110801
  11. MOHRUS TAPE L [Concomitant]
     Route: 065
     Dates: start: 20111026, end: 20111029
  12. VIDAZA [Suspect]
     Dosage: 75 MILLIGRAM/SQ. METER
     Route: 041
     Dates: start: 20110808, end: 20110814
  13. DEXAMETHASONE SODIUM PHOSPHATE [Concomitant]
     Route: 065
     Dates: start: 20110711, end: 20110814
  14. CIFROQUINON [Concomitant]
     Route: 065
  15. VIDAZA [Suspect]
     Dosage: 75 MILLIGRAM/SQ. METER
     Route: 041
     Dates: start: 20110920, end: 20110926
  16. AMLODIPINE [Concomitant]
     Route: 065
     Dates: start: 20110715
  17. HEPARIN NA LOCK [Concomitant]
     Route: 065
     Dates: start: 20110711, end: 20110814
  18. NEOPHAGEN [Concomitant]
     Route: 065
     Dates: start: 20110727, end: 20110727
  19. NORVASC [Concomitant]
     Route: 065
  20. KYTRIL [Concomitant]
     Route: 065
     Dates: end: 20110930
  21. NEOPHAGEN [Concomitant]
     Route: 065
     Dates: start: 20110720, end: 20110720

REACTIONS (1)
  - ACUTE MYELOID LEUKAEMIA [None]
